FAERS Safety Report 16601852 (Version 2)
Quarter: 2025Q1

REPORT INFORMATION
  Report Type: Spontaneous
  Country: US (occurrence: US)
  Receive Date: 20190719
  Receipt Date: 20250124
  Transmission Date: 20250409
  Serious: Yes (Other)
  Sender: BIOMARIN
  Company Number: US-BIOMARINAP-US-2019-124695

PATIENT

DRUGS (1)
  1. PALYNZIQ [Suspect]
     Active Substance: PEGVALIASE-PQPZ
     Indication: Product used for unknown indication
     Route: 058

REACTIONS (4)
  - Throat tightness [Recovered/Resolved]
  - Chest discomfort [Recovered/Resolved]
  - Musculoskeletal stiffness [Recovered/Resolved]
  - Chest pain [Recovered/Resolved]

NARRATIVE: CASE EVENT DATE: 20190101
